FAERS Safety Report 6980804-1 (Version None)
Quarter: 2010Q3

REPORT INFORMATION
  Report Type: 
  Country: None (occurrence: None)
  Receive Date: 20100914
  Receipt Date: 20100903
  Transmission Date: 20110219
  Serious: Yes (Other)
  Sender: FDA-Public Use
  Company Number: JP-WATSON-2010-11277

PATIENT
  Age: 4 Year
  Sex: Male

DRUGS (4)
  1. TOPIRAMATE [Suspect]
     Indication: MYOCLONIC EPILEPSY
     Dosage: 25 MG, DAILY
  2. VALPROATE SODIUM [Concomitant]
     Indication: MYOCLONIC EPILEPSY
  3. PHENOBARBITAL [Concomitant]
     Indication: MYOCLONIC EPILEPSY
  4. CLOBAZAM [Concomitant]
     Indication: MYOCLONIC EPILEPSY

REACTIONS (1)
  - CONVULSION [None]
